FAERS Safety Report 17313855 (Version 3)
Quarter: 2020Q3

REPORT INFORMATION
  Report Type: Spontaneous
  Country: US (occurrence: US)
  Receive Date: 20200124
  Receipt Date: 20200924
  Transmission Date: 20201102
  Serious: Yes (Other)
  Sender: FDA-Public Use
  Company Number: US-AUROBINDO-AUR-APL-2020-002999

PATIENT
  Age: 48 Year
  Sex: Male

DRUGS (5)
  1. ARGATROBAN. [Suspect]
     Active Substance: ARGATROBAN
     Indication: PRODUCT USED FOR UNKNOWN INDICATION
     Dosage: 1.25 MICROGRAM/KILOGRAM/ MIN
     Route: 065
  2. BIVALIRUDIN. [Suspect]
     Active Substance: BIVALIRUDIN
     Indication: PRODUCT USED FOR UNKNOWN INDICATION
     Dosage: 0.54 MILLIGRAM/KILOGRAM, EVERY HOUR
     Route: 065
  3. BIVALIRUDIN. [Suspect]
     Active Substance: BIVALIRUDIN
     Dosage: 0.34 MILLIGRAM/KILOGRAM, EVERY HOUR
     Route: 065
  4. ARGATROBAN. [Suspect]
     Active Substance: ARGATROBAN
     Dosage: 2.2 MICROGRAM/KILOGRAM/MIN
     Route: 065
  5. BIVALIRUDIN. [Suspect]
     Active Substance: BIVALIRUDIN
     Dosage: 0.15 MILLIGRAM/KILOGRAM, EVERY HOUR
     Route: 065

REACTIONS (2)
  - Treatment failure [Unknown]
  - Drug resistance [Unknown]
